FAERS Safety Report 9434236 (Version 1)
Quarter: 2013Q3

REPORT INFORMATION
  Report Type: Spontaneous
  Country: US (occurrence: US)
  Receive Date: 20130801
  Receipt Date: 20130801
  Transmission Date: 20140515
  Serious: Yes (Life-Threatening, Hospitalization, Disabling, Other)
  Sender: FDA-Public Use
  Company Number: US-AMGEN-USASP2013052865

PATIENT
  Age: 75 Year
  Sex: Male
  Weight: 79 kg

DRUGS (10)
  1. XGEVA [Suspect]
     Indication: METASTASES TO BONE
     Dosage: 120 MG, Q21 DAYS
     Route: 065
     Dates: start: 20110118
  2. TOPROL [Concomitant]
     Dosage: UNK
     Dates: start: 20130312
  3. METFORMIN [Concomitant]
     Dosage: UNK
     Dates: start: 20121022
  4. ERGOCALCIFEROL [Concomitant]
     Dosage: UNK
     Dates: start: 2011
  5. ZOCOR [Concomitant]
     Dosage: UNK
     Dates: start: 2005
  6. NOVOLOG [Concomitant]
     Dosage: UNK
     Dates: start: 20130613
  7. KLOR-CON [Concomitant]
     Dosage: UNK
     Dates: start: 2010
  8. CALCIUM 500+D3 [Concomitant]
     Dosage: UNK
     Dates: start: 20110211
  9. VIT D [Concomitant]
     Dosage: UNK
     Dates: start: 20110211
  10. LUPRON [Concomitant]
     Dosage: UNK
     Dates: start: 20031014

REACTIONS (29)
  - Leukopenia [Recovered/Resolved]
  - Hypocalcaemia [Recovered/Resolved]
  - Electrocardiogram QT prolonged [Recovered/Resolved]
  - Atrial fibrillation [Recovered/Resolved with Sequelae]
  - Urinary retention [Recovered/Resolved]
  - Renal failure acute [Recovered/Resolved]
  - Pancreatitis [Recovered/Resolved]
  - Pneumonia aspiration [Recovered/Resolved]
  - Chest pain [Recovered/Resolved]
  - Metabolic acidosis [Recovered/Resolved]
  - Confusional state [Recovered/Resolved]
  - Hyponatraemia [Recovered/Resolved]
  - Hypoalbuminaemia [Recovered/Resolved]
  - Supraventricular tachycardia [Recovered/Resolved]
  - Hyperglycaemia [Recovered/Resolved with Sequelae]
  - Sinus tachycardia [Recovered/Resolved]
  - Hypercalcaemia [Recovered/Resolved]
  - Abdominal pain [Recovered/Resolved]
  - Neutropenia [Recovered/Resolved]
  - Febrile neutropenia [Recovered/Resolved]
  - Deep vein thrombosis [Not Recovered/Not Resolved]
  - Asthenia [Recovering/Resolving]
  - Fatigue [Recovering/Resolving]
  - Nausea [Recovered/Resolved]
  - Diarrhoea [Recovered/Resolved]
  - Abnormal loss of weight [Unknown]
  - Hypophosphataemia [Recovered/Resolved with Sequelae]
  - Dyspnoea [Recovered/Resolved]
  - Decreased appetite [Recovering/Resolving]
